FAERS Safety Report 8827932 (Version 1)
Quarter: 2012Q4

REPORT INFORMATION
  Report Type: 
  Country: IT (occurrence: IT)
  Receive Date: 20121005
  Receipt Date: 20121005
  Transmission Date: 20130627
  Serious: Yes (Other)
  Sender: FDA-Public Use
  Company Number: IT-ROXANE LABORATORIES, INC.-2012-RO-01937RO

PATIENT
  Age: 33 Day
  Sex: Female

DRUGS (3)
  1. PROPRANOLOL [Suspect]
     Indication: HAEMANGIOMA
     Route: 048
  2. DOMPERIDONE [Suspect]
     Indication: GASTROOESOPHAGEAL REFLUX DISEASE
  3. RANITIDINE [Suspect]
     Indication: GASTROOESOPHAGEAL REFLUX DISEASE

REACTIONS (1)
  - Tumour lysis syndrome [Recovered/Resolved]
